FAERS Safety Report 16377108 (Version 1)
Quarter: 2019Q3

REPORT INFORMATION
  Report Type: Spontaneous
  Country: US (occurrence: US)
  Receive Date: 20190530
  Receipt Date: 20190530
  Transmission Date: 20191004
  Serious: No
  Sender: FDA-Public Use
  Company Number: None

PATIENT
  Age: 57 Year
  Sex: Female
  Weight: 67.5 kg

DRUGS (1)
  1. TRAVATAN [Suspect]
     Active Substance: TRAVOPROST
     Indication: INTRAOCULAR PRESSURE INCREASED
     Dosage: ?          QUANTITY:1 DROP(S);OTHER FREQUENCY:ONCE EVERY EVENING;?
     Route: 047
     Dates: start: 20190530, end: 20190530

REACTIONS (3)
  - Dizziness [None]
  - Swollen tongue [None]
  - Pharyngeal swelling [None]

NARRATIVE: CASE EVENT DATE: 20190530
